FAERS Safety Report 6237940-7 (Version None)
Quarter: 2009Q2

REPORT INFORMATION
  Report Type: 
  Country: None (occurrence: None)
  Receive Date: 20090622
  Receipt Date: 20090616
  Transmission Date: 20091009
  Serious: Yes (Death, Life-Threatening, Hospitalization)
  Sender: FDA-Public Use
  Company Number: DE-TEVA-198473ISR

PATIENT
  Age: 59 Year
  Sex: Female

DRUGS (2)
  1. CYTARABINE [Suspect]
     Indication: ACUTE MYELOID LEUKAEMIA
  2. MITOXANTRONE [Suspect]
     Indication: ACUTE MYELOID LEUKAEMIA

REACTIONS (4)
  - BRAIN OEDEMA [None]
  - COMA [None]
  - CONVULSION [None]
  - HYPERAMMONAEMIA [None]
